FAERS Safety Report 10639891 (Version 1)
Quarter: 2014Q4

REPORT INFORMATION
  Report Type: Report from Study
  Country: US (occurrence: US)
  Receive Date: 20141209
  Receipt Date: 20141209
  Transmission Date: 20150529
  Serious: Yes (Hospitalization)
  Sender: FDA-Public Use
  Company Number: US-ELI_LILLY_AND_COMPANY-US201411010377

PATIENT
  Age: 71 Year
  Sex: Male
  Weight: 78.46 kg

DRUGS (23)
  1. METFORMIN [Concomitant]
     Active Substance: METFORMIN HYDROCHLORIDE
     Indication: DIABETES MELLITUS
     Dosage: 500 MG, UNKNOWN
  2. FLUTICASONE W/SALMETEROL [Concomitant]
     Active Substance: FLUTICASONE PROPIONATE\SALMETEROL XINAFOATE
     Indication: CHRONIC OBSTRUCTIVE PULMONARY DISEASE
  3. ABEMACICLIB [Suspect]
     Active Substance: ABEMACICLIB
     Indication: NON-SMALL CELL LUNG CANCER METASTATIC
     Dosage: 200 MG, BID
     Route: 048
     Dates: start: 20141022, end: 20141120
  4. IPRATROPIUM [Concomitant]
     Active Substance: IPRATROPIUM
     Indication: CHRONIC OBSTRUCTIVE PULMONARY DISEASE
     Dosage: 0.02 %, UNKNOWN
  5. PREDNISONE. [Concomitant]
     Active Substance: PREDNISONE
     Indication: COUGH
     Dosage: 20 MG, UNKNOWN
     Dates: start: 20141114
  6. MONTELUKAST [Concomitant]
     Active Substance: MONTELUKAST SODIUM
     Indication: CHRONIC OBSTRUCTIVE PULMONARY DISEASE
     Dosage: 10 MG, UNKNOWN
  7. CIMETIDINE [Concomitant]
     Active Substance: CIMETIDINE
  8. ALBUTEROL                          /00139501/ [Concomitant]
     Active Substance: ALBUTEROL
     Indication: CHRONIC OBSTRUCTIVE PULMONARY DISEASE
     Dosage: UNK
  9. RAMIPRIL. [Concomitant]
     Active Substance: RAMIPRIL
     Indication: BLOOD PRESSURE INCREASED
     Dosage: UNK
  10. ALPRAZOLAM. [Concomitant]
     Active Substance: ALPRAZOLAM
     Indication: ANXIETY
     Dosage: 0.5 MG, UNKNOWN
  11. PEMETREXED [Suspect]
     Active Substance: PEMETREXED
     Indication: NON-SMALL CELL LUNG CANCER METASTATIC
     Dosage: 500 MG/M2, UNK
     Route: 042
  12. OMEGA 3                            /01334101/ [Concomitant]
     Active Substance: OMEGA-3 FATTY ACIDS
     Indication: VITAMIN SUPPLEMENTATION
  13. AMLODIPINE [Concomitant]
     Active Substance: AMLODIPINE BESYLATE
     Indication: BLOOD PRESSURE INCREASED
     Dosage: UNK
  14. MVI [Concomitant]
     Active Substance: VITAMINS
  15. ONDANSETRON [Concomitant]
     Active Substance: ONDANSETRON
     Indication: NAUSEA
     Dosage: 8 MG, UNKNOWN
  16. FOLIC ACID. [Concomitant]
     Active Substance: FOLIC ACID
     Indication: VITAMIN B COMPLEX DEFICIENCY
     Dosage: 1 MG, UNKNOWN
  17. PROCHLORPERAZINE. [Concomitant]
     Active Substance: PROCHLORPERAZINE
     Indication: NAUSEA
     Dosage: UNK
  18. INSULIN DETEMIR [Concomitant]
     Active Substance: INSULIN DETEMIR
     Indication: DIABETES MELLITUS
     Dosage: UNK
  19. MOXIFLOXACIN [Concomitant]
     Active Substance: MOXIFLOXACIN
     Indication: PNEUMONIA
     Dosage: 400 MG, UNKNOWN
     Dates: start: 20141114
  20. PROMETHAZINE W/CODEINE             /06838701/ [Concomitant]
     Indication: COUGH
     Dosage: UNK
  21. BENZONATATE. [Concomitant]
     Active Substance: BENZONATATE
     Indication: COUGH
     Dosage: 100 MG, UNKNOWN
  22. PROCHLORPERAZINE. [Concomitant]
     Active Substance: PROCHLORPERAZINE
     Indication: VOMITING
  23. GUAIFENESIN. [Concomitant]
     Active Substance: GUAIFENESIN
     Indication: COUGH
     Dosage: 600 MG, UNKNOWN

REACTIONS (2)
  - Neutropenia [Not Recovered/Not Resolved]
  - Dysphagia [Not Recovered/Not Resolved]

NARRATIVE: CASE EVENT DATE: 20141123
